FAERS Safety Report 17860329 (Version 3)
Quarter: 2023Q1

REPORT INFORMATION
  Report Type: Spontaneous
  Country: US (occurrence: US)
  Receive Date: 20200604
  Receipt Date: 20230116
  Transmission Date: 20230417
  Serious: Yes (Other)
  Sender: FDA-Public Use
  Company Number: US-SUNOVION-2020SUN001632

PATIENT
  Age: 70 Year
  Sex: Female

DRUGS (1)
  1. LATUDA [Suspect]
     Active Substance: LURASIDONE HYDROCHLORIDE
     Indication: Bipolar disorder
     Dosage: 60 MG, QD
     Route: 048

REACTIONS (5)
  - Depression [Unknown]
  - Suicidal ideation [Unknown]
  - Seasonal affective disorder [Unknown]
  - Migraine [Unknown]
  - Asthma [Unknown]
